FAERS Safety Report 5746045-0 (Version None)
Quarter: 2008Q2

REPORT INFORMATION
  Report Type: 
  Country: None (occurrence: None)
  Receive Date: 20080522
  Receipt Date: 20080512
  Transmission Date: 20081010
  Serious: Yes (Other)
  Sender: FDA-Public Use
  Company Number: SE-JNJFOC-20080502637

PATIENT
  Age: 40 Year
  Sex: Female

DRUGS (4)
  1. REMICADE [Suspect]
     Indication: CROHN'S DISEASE
     Route: 042
  2. AZATHIOPRINE [Concomitant]
  3. PENTASA [Concomitant]
  4. BEHEPAN [Concomitant]

REACTIONS (3)
  - ARTHROPATHY [None]
  - ECZEMA [None]
  - RASH [None]
